FAERS Safety Report 9477479 (Version 2)
Quarter: 2013Q4

REPORT INFORMATION
  Report Type: Spontaneous
  Country: JP (occurrence: JP)
  Receive Date: 20130827
  Receipt Date: 20131206
  Transmission Date: 20140711
  Serious: Yes (Hospitalization)
  Sender: FDA-Public Use
  Company Number: JP-ROCHE-1266487

PATIENT
  Age: 73 Year
  Sex: Female

DRUGS (2)
  1. AVASTIN [Suspect]
     Indication: LUNG ADENOCARCINOMA
     Route: 041
  2. ALIMTA [Concomitant]
     Indication: LUNG ADENOCARCINOMA
     Route: 041

REACTIONS (1)
  - Lung disorder [Recovered/Resolved]
